FAERS Safety Report 7353638-6 (Version None)
Quarter: 2011Q1

REPORT INFORMATION
  Report Type: 
  Country: None (occurrence: None)
  Receive Date: 20110310
  Receipt Date: 20110310
  Transmission Date: 20110831
  Serious: Yes (Other)
  Sender: FDA-Public Use
  Company Number: None

PATIENT
  Age: 14 Month
  Sex: Male
  Weight: 10.2059 kg

DRUGS (2)
  1. CEFDINIR [Suspect]
     Indication: SINUSITIS
     Dosage: 3 ML 2X DAILY FOR 5 DAYS ORAL
     Route: 048
     Dates: start: 20110224, end: 20110228
  2. CEFDINIR [Suspect]
     Indication: EAR INFECTION
     Dosage: 3 ML 2X DAILY FOR 5 DAYS ORAL
     Route: 048
     Dates: start: 20110224, end: 20110228

REACTIONS (6)
  - MUSCLE TWITCHING [None]
  - FLATULENCE [None]
  - HEART RATE INCREASED [None]
  - MUSCULOSKELETAL DISORDER [None]
  - AGITATION [None]
  - EYE DISORDER [None]
